FAERS Safety Report 24465728 (Version 1)
Quarter: 2024Q4

REPORT INFORMATION
  Report Type: Report from Study
  Country: US (occurrence: US)
  Receive Date: 20241018
  Receipt Date: 20241018
  Transmission Date: 20250114
  Serious: No
  Sender: ROCHE
  Company Number: US-ROCHE-3520228

PATIENT
  Age: 69 Year
  Sex: Female
  Weight: 53.52 kg

DRUGS (6)
  1. XOLAIR [Suspect]
     Active Substance: OMALIZUMAB
     Indication: Mechanical urticaria
     Dosage: INJECTION IN THE ARM MUSCLE?ANTICIPATED DATE OF TREATMENT REPORTED ON 25/MAR/2024.
     Route: 058
     Dates: start: 20240121
  2. XOLAIR [Suspect]
     Active Substance: OMALIZUMAB
     Indication: Idiopathic urticaria
  3. AZELAIC ACID [Concomitant]
     Active Substance: AZELAIC ACID
     Indication: Rosacea
     Dosage: FOR ROSACEA ON FACE, TOPICAL CREAM
  4. CLOBETASOL [Concomitant]
     Active Substance: CLOBETASOL
     Indication: Skin fissures
     Dosage: TOPICAL OINTMENT
  5. CRANBERRY [Concomitant]
     Active Substance: CRANBERRY
  6. ZYRTEC [Concomitant]
     Active Substance: CETIRIZINE HYDROCHLORIDE
     Dosage: ONCE A DAY

REACTIONS (3)
  - Pruritus [Not Recovered/Not Resolved]
  - Urticaria [Not Recovered/Not Resolved]
  - Rash [Not Recovered/Not Resolved]

NARRATIVE: CASE EVENT DATE: 20240227
